FAERS Safety Report 7983354-9 (Version None)
Quarter: 2011Q4

REPORT INFORMATION
  Report Type: 
  Country: None (occurrence: None)
  Receive Date: 20111215
  Receipt Date: 20111208
  Transmission Date: 20120403
  Serious: Yes (Hospitalization)
  Sender: FDA-Public Use
  Company Number: US-MEDIMMUNE-MEDI-0014111

PATIENT
  Sex: Female

DRUGS (1)
  1. SYNAGIS [Suspect]
     Dates: start: 20111108, end: 20111206

REACTIONS (4)
  - LISTLESS [None]
  - DYSKINESIA [None]
  - ORAL DISCHARGE [None]
  - CYANOSIS [None]
